FAERS Safety Report 6530592-8 (Version None)
Quarter: 2010Q1

REPORT INFORMATION
  Report Type: 
  Country: None (occurrence: None)
  Receive Date: 20100108
  Receipt Date: 20091230
  Transmission Date: 20100710
  Serious: Yes (Other)
  Sender: FDA-Public Use
  Company Number: GB-RANBAXY-2009RR-30230

PATIENT
  Age: 9 Year
  Sex: Female

DRUGS (4)
  1. TOPIRAMATE [Suspect]
     Indication: CONVULSION
     Dosage: 0.5 MG/KG, UNK
     Route: 065
  2. TOPIRAMATE [Suspect]
     Dosage: 9 MG/KG, QD
  3. CLOBAZAM [Concomitant]
     Indication: CONVULSION
  4. GABAPENTIN [Concomitant]
     Indication: CONVULSION

REACTIONS (1)
  - ALLODYNIA [None]
